FAERS Safety Report 26027683 (Version 1)
Quarter: 2025Q4

REPORT INFORMATION
  Report Type: Spontaneous
  Country: EU (occurrence: EU)
  Receive Date: 20251111
  Receipt Date: 20251111
  Transmission Date: 20260118
  Serious: Yes (Death, Hospitalization, Other)
  Sender: ASTELLAS
  Company Number: EU-ASTELLAS-2025-AER-062718

PATIENT
  Age: 66 Year
  Sex: Male

DRUGS (5)
  1. TACROLIMUS [Suspect]
     Active Substance: TACROLIMUS
     Indication: Renal transplant
     Route: 065
     Dates: end: 2024
  2. TACROLIMUS [Suspect]
     Active Substance: TACROLIMUS
     Dosage: DOSE REDUCED
     Route: 065
     Dates: start: 2024
  3. ISAVUCONAZOLE [Suspect]
     Active Substance: ISAVUCONAZOLE
     Indication: Fungal infection
     Route: 065
     Dates: start: 2024
  4. ITRACONAZOLE [Suspect]
     Active Substance: ITRACONAZOLE
     Indication: Renal transplant
     Route: 065
     Dates: start: 202402
  5. AZATHIOPRINE [Suspect]
     Active Substance: AZATHIOPRINE
     Indication: Renal transplant
     Route: 065
     Dates: end: 2024

REACTIONS (6)
  - Cardiac arrest [Fatal]
  - Fungal infection [Fatal]
  - Bacterial infection [Fatal]
  - Skin papilloma [Unknown]
  - Drug interaction [Unknown]
  - Off label use [Unknown]

NARRATIVE: CASE EVENT DATE: 20230501
